FAERS Safety Report 7164386-X (Version None)
Quarter: 2010Q4

REPORT INFORMATION
  Report Type: 
  Country: None (occurrence: None)
  Receive Date: 20101215
  Receipt Date: 20101207
  Transmission Date: 20110411
  Serious: Yes (Other)
  Sender: FDA-Public Use
  Company Number: LB-NOVOPROD-319879

PATIENT
  Sex: Female

DRUGS (1)
  1. VICTOZA [Suspect]
     Indication: PRODUCT USED FOR UNKNOWN INDICATION

REACTIONS (1)
  - TACHYCARDIA [None]
